FAERS Safety Report 5797130-9 (Version None)
Quarter: 2008Q3

REPORT INFORMATION
  Report Type: 
  Country: None (occurrence: None)
  Receive Date: 20080701
  Receipt Date: 20080623
  Transmission Date: 20090109
  Serious: Yes (Other)
  Sender: FDA-Public Use
  Company Number: PHRM2008FR00570

PATIENT
  Age: 38 Year
  Sex: Female

DRUGS (4)
  1. TEGRETOL [Suspect]
     Dosage: 200 MG/DAY
     Route: 065
  2. ANAFRANIL [Suspect]
     Dosage: 100 MG/DAY
     Route: 065
  3. LYSANXIA [Suspect]
     Dosage: 1 DF/DAY
     Route: 065
  4. TERCIAN [Suspect]
     Route: 065

REACTIONS (4)
  - CAESAREAN SECTION [None]
  - DRUG EXPOSURE DURING PREGNANCY [None]
  - HAEMORRHAGE [None]
  - RENAL APLASIA [None]
